FAERS Safety Report 14700637 (Version 1)
Quarter: 2018Q1

REPORT INFORMATION
  Report Type: Spontaneous
  Country: CH (occurrence: CH)
  Receive Date: 20180330
  Receipt Date: 20180330
  Transmission Date: 20180509
  Serious: Yes (Hospitalization)
  Sender: FDA-Public Use
  Company Number: CH-PFIZER INC-2018127325

PATIENT
  Age: 55 Year
  Sex: Female

DRUGS (6)
  1. ZANIDIP [Concomitant]
     Active Substance: LERCANIDIPINE HYDROCHLORIDE
     Indication: HYPERTENSION
     Dosage: 5 MG, 1X/DAY (5 MG/DAY)
     Route: 048
  2. TEMESTA EXPIDET [Suspect]
     Active Substance: LORAZEPAM
     Dosage: 0.5 MG, 1X/DAY
     Route: 048
     Dates: end: 20180228
  3. TRITTICO [Suspect]
     Active Substance: TRAZODONE HYDROCHLORIDE
     Dosage: 20 DF, SINGLE (INTAKE OF ABOUT 20 TABLETS AT ONCE )
     Route: 048
     Dates: start: 20180227, end: 20180227
  4. QUETIAPIN SANDOZ [Suspect]
     Active Substance: QUETIAPINE
     Dosage: 25 MG, 1X/DAY
     Route: 048
  5. HYDROCORTISONE. [Concomitant]
     Active Substance: HYDROCORTISONE
     Indication: ADRENAL INSUFFICIENCY
     Dosage: 10 MG, ACCORDING TO SCHEME 1-1-1/2-0
     Route: 048
  6. FLOXYFRAL [Suspect]
     Active Substance: FLUVOXAMINE
     Dosage: 20 DF, SINGLE (INTAKE OF ABOUT 20 TABLETS AT ONCE)
     Route: 048
     Dates: start: 20180227, end: 20180227

REACTIONS (3)
  - Somnolence [Recovered/Resolved]
  - Suicide attempt [Recovered/Resolved]
  - Drug abuse [Recovered/Resolved]

NARRATIVE: CASE EVENT DATE: 20180227
